FAERS Safety Report 9833084 (Version 2)
Quarter: 2014Q1

REPORT INFORMATION
  Report Type: Spontaneous
  Country: US (occurrence: US)
  Receive Date: 20140121
  Receipt Date: 20140121
  Transmission Date: 20141002
  Serious: Yes (Hospitalization)
  Sender: FDA-Public Use
  Company Number: US-B.I. PHARMACEUTICALS,INC./RIDGEFIELD-2013-BI-23048BP

PATIENT
  Sex: Male
  Weight: 92.53 kg

DRUGS (11)
  1. PRADAXA [Suspect]
     Indication: ATRIAL FIBRILLATION
     Dosage: 300 MG
     Dates: start: 20120601, end: 20120805
  2. ASPIRIN [Concomitant]
  3. PROSCAR [Concomitant]
     Dosage: 5 MG
  4. HYDROCHLOROTHIAZIDE [Concomitant]
     Dosage: 12.5 MG
  5. LANTUS [Concomitant]
  6. HUMALOG [Concomitant]
  7. LOVASTATIN [Concomitant]
     Dosage: 10 MG
  8. LOPRESSOR [Concomitant]
     Dosage: 50 MG
  9. POTASSIUM [Concomitant]
     Dosage: 8 MEQ
  10. FLOMAX [Concomitant]
     Dosage: 0.8 MG
  11. VITAMIN D [Concomitant]
     Dosage: 2000 U

REACTIONS (2)
  - Gastrointestinal haemorrhage [Unknown]
  - Anaemia [Unknown]
